FAERS Safety Report 8988339 (Version 1)
Quarter: 2012Q4

REPORT INFORMATION
  Report Type: Spontaneous
  Country: US (occurrence: None)
  Receive Date: 20121220
  Receipt Date: 20121220
  Transmission Date: 20130627
  Serious: No
  Sender: FDA-Public Use
  Company Number: None

PATIENT
  Age: 53 Year
  Sex: Female

DRUGS (2)
  1. IRBESARTAN AND HYDROCHLOROTHIAZIDE [Suspect]
     Indication: HYPERTENSION
     Dosage: 150mg/12.5  QD  PO
     Route: 048
     Dates: start: 20120511, end: 20120621
  2. IRBESARTAN AND HYDROCHLOROTHIAZIDE [Suspect]
     Indication: PERIPHERAL EDEMA
     Dosage: 150mg/12.5  QD  PO
     Route: 048
     Dates: start: 20120511, end: 20120621

REACTIONS (2)
  - Abdominal discomfort [None]
  - Frequent bowel movements [None]
